FAERS Safety Report 12689506 (Version 4)
Quarter: 2019Q2

REPORT INFORMATION
  Report Type: Spontaneous
  Country: FR (occurrence: FR)
  Receive Date: 20160826
  Receipt Date: 20190523
  Transmission Date: 20190711
  Serious: Yes (Other)
  Sender: FDA-Public Use
  Company Number: PHHY2016FR117066

PATIENT
  Age: 39 Year
  Sex: Male
  Weight: 86 kg

DRUGS (11)
  1. TEGRETOL [Suspect]
     Active Substance: CARBAMAZEPINE
     Indication: CLUSTER HEADACHE
     Dosage: 800 MG, QD
     Route: 048
     Dates: start: 2013
  2. LAROXYL [Concomitant]
     Active Substance: AMITRIPTYLINE HYDROCHLORIDE
     Indication: PRODUCT USED FOR UNKNOWN INDICATION
     Dosage: 125 MG, QD
     Route: 065
     Dates: start: 2013
  3. SYMBICORT [Concomitant]
     Active Substance: BUDESONIDE\FORMOTEROL FUMARATE DIHYDRATE
     Indication: PRODUCT USED FOR UNKNOWN INDICATION
     Route: 065
  4. ALCOOL [Suspect]
     Active Substance: ALCOHOL
     Indication: PRODUCT USED FOR UNKNOWN INDICATION
     Dosage: UNK
     Route: 065
  5. LAMALINE (ACETAMINOPHEN\CAFFEINE\OPIUM) [Suspect]
     Active Substance: ACETAMINOPHEN\CAFFEINE\OPIUM
     Indication: PRODUCT USED FOR UNKNOWN INDICATION
     Dosage: UNK, UNTIL 4 DF DAILY
     Route: 048
  6. DEPAKOTE [Concomitant]
     Active Substance: DIVALPROEX SODIUM
     Indication: AFFECTIVE DISORDER
     Dosage: 1 G, QD
     Route: 065
     Dates: start: 2013
  7. CODOLIPRANE [Suspect]
     Active Substance: ACETAMINOPHEN\CODEINE PHOSPHATE
     Indication: PRODUCT USED FOR UNKNOWN INDICATION
     Dosage: 10 DF, QD
     Route: 048
     Dates: start: 201212, end: 2013
  8. COCAINE [Suspect]
     Active Substance: COCAINE
     Indication: PRODUCT USED FOR UNKNOWN INDICATION
     Dosage: UNK
     Route: 065
     Dates: start: 201506
  9. TRAMADOL. [Suspect]
     Active Substance: TRAMADOL
     Indication: CLUSTER HEADACHE
     Dosage: 9 DF, QD
     Route: 048
     Dates: start: 2013
  10. PREGABALINE [Suspect]
     Active Substance: PREGABALIN
     Indication: CLUSTER HEADACHE
     Dosage: 600 MG, UNK
     Route: 048
     Dates: start: 2013
  11. BACLOFEN. [Concomitant]
     Active Substance: BACLOFEN
     Indication: ALCOHOLISM
     Dosage: 12 DF, QD
     Route: 048
     Dates: start: 201209

REACTIONS (3)
  - Cluster headache [Not Recovered/Not Resolved]
  - Drug abuse [Not Recovered/Not Resolved]
  - Trigeminal neuralgia [Not Recovered/Not Resolved]

NARRATIVE: CASE EVENT DATE: 1996
